FAERS Safety Report 20764589 (Version 1)
Quarter: 2022Q2

REPORT INFORMATION
  Report Type: Spontaneous
  Country: US (occurrence: US)
  Receive Date: 20220428
  Receipt Date: 20220428
  Transmission Date: 20220721
  Serious: Yes (Other)
  Sender: FDA-Public Use
  Company Number: US-ELI_LILLY_AND_COMPANY-US202204009306

PATIENT
  Sex: Male

DRUGS (2)
  1. TRULICITY [Suspect]
     Active Substance: DULAGLUTIDE
     Indication: Product used for unknown indication
     Dosage: 0.75 MG, UNKNOWN
     Route: 065
     Dates: start: 202201
  2. METFORMIN [Concomitant]
     Active Substance: METFORMIN HYDROCHLORIDE
     Indication: Product used for unknown indication

REACTIONS (4)
  - Bone disorder [Not Recovered/Not Resolved]
  - Gait disturbance [Not Recovered/Not Resolved]
  - Glycosylated haemoglobin increased [Recovering/Resolving]
  - Weight decreased [Unknown]
